FAERS Safety Report 15831235 (Version 1)
Quarter: 2018Q4

REPORT INFORMATION
  Report Type: Spontaneous
  Country: US (occurrence: US)
  Receive Date: 20181218
  Receipt Date: 20181218
  Transmission Date: 20190205
  Serious: Yes (Hospitalization)
  Sender: FDA-Public Use
  Company Number: None

PATIENT
  Age: 70 Year
  Sex: Male

DRUGS (8)
  1. TAFINLAR [Suspect]
     Active Substance: DABRAFENIB MESYLATE
     Indication: MULTIPLE SCLEROSIS
     Route: 048
     Dates: start: 20180802
  2. MULTIVITAMIN [Concomitant]
     Active Substance: VITAMINS
  3. DABRAFENIB [Concomitant]
     Active Substance: DABRAFENIB
  4. AMPYRA [Concomitant]
     Active Substance: DALFAMPRIDINE
  5. LOVENOX [Concomitant]
     Active Substance: ENOXAPARIN SODIUM
  6. BACLOFEN. [Concomitant]
     Active Substance: BACLOFEN
  7. VITAMIN B [Concomitant]
     Active Substance: VITAMIN B
  8. VITAMIN D3 [Concomitant]
     Active Substance: CHOLECALCIFEROL

REACTIONS (3)
  - Pyrexia [None]
  - Peripheral swelling [None]
  - Skin discolouration [None]
